FAERS Safety Report 5325891-1 (Version None)
Quarter: 2007Q2

REPORT INFORMATION
  Report Type: 
  Country: None (occurrence: None)
  Receive Date: 20070516
  Receipt Date: 20070508
  Transmission Date: 20071010
  Serious: Yes (Other)
  Sender: FDA-Public Use
  Company Number: DE-JNJFOC-20070501568

PATIENT
  Sex: Male
  Weight: 80 kg

DRUGS (5)
  1. REOPRO [Suspect]
     Indication: THROMBOSIS IN DEVICE
  2. REOPRO [Suspect]
     Indication: ACUTE MYOCARDIAL INFARCTION
  3. ASPIRIN [Concomitant]
  4. CLOPIDOGREL [Concomitant]
  5. HEPARIN [Concomitant]

REACTIONS (2)
  - THROMBOCYTOPENIA [None]
  - THROMBOSIS IN DEVICE [None]
